FAERS Safety Report 6334054-2 (Version None)
Quarter: 2009Q3

REPORT INFORMATION
  Report Type: 
  Country: None (occurrence: None)
  Receive Date: 20090829
  Receipt Date: 20090710
  Transmission Date: 20100115
  Serious: No
  Sender: FDA-Public Use
  Company Number: US-ABBOTT-09P-163-0584890-00

PATIENT
  Sex: Female
  Weight: 72.64 kg

DRUGS (10)
  1. SIMCOR [Suspect]
     Indication: BLOOD CHOLESTEROL INCREASED
     Dosage: 500MG/20MG AT BEDTIME
     Dates: start: 20090501, end: 20090601
  2. ASPIRIN [Concomitant]
     Indication: DRUG USE FOR UNKNOWN INDICATION
  3. PRILOSEC [Concomitant]
     Indication: DRUG USE FOR UNKNOWN INDICATION
  4. BENICAR [Concomitant]
     Indication: DRUG USE FOR UNKNOWN INDICATION
  5. HYDROCHLOROTHIAZIDE [Concomitant]
     Indication: DRUG USE FOR UNKNOWN INDICATION
  6. MVT [Concomitant]
     Indication: DRUG USE FOR UNKNOWN INDICATION
  7. VIT E [Concomitant]
     Indication: DRUG USE FOR UNKNOWN INDICATION
  8. VIT C [Concomitant]
     Indication: DRUG USE FOR UNKNOWN INDICATION
  9. VIT D [Concomitant]
     Indication: DRUG USE FOR UNKNOWN INDICATION
  10. CALCIUM [Concomitant]
     Indication: DRUG USE FOR UNKNOWN INDICATION

REACTIONS (1)
  - FLUSHING [None]
